FAERS Safety Report 25574275 (Version 3)
Quarter: 2025Q4

REPORT INFORMATION
  Report Type: Spontaneous
  Country: US (occurrence: US)
  Receive Date: 20250717
  Receipt Date: 20251008
  Transmission Date: 20260119
  Serious: Yes (Other)
  Sender: SANOFI AVENTIS
  Company Number: US-SA-2025SA202127

PATIENT
  Sex: Female
  Weight: 57.143 kg

DRUGS (9)
  1. DUPIXENT [Suspect]
     Active Substance: DUPILUMAB
     Indication: Dermatitis atopic
     Dosage: 300 MG, QOW
     Route: 058
  2. PROMETHAZINE HYDROCHLORIDE [Concomitant]
     Active Substance: PROMETHAZINE HYDROCHLORIDE
     Dosage: UNK
  3. NURTEC ODT [Concomitant]
     Active Substance: RIMEGEPANT SULFATE
     Dosage: UNK
  4. VIVELLE-DOT [Concomitant]
     Active Substance: ESTRADIOL
     Dosage: UNK
  5. GABAPENTIN [Concomitant]
     Active Substance: GABAPENTIN
     Dosage: UNK
  6. CRESTOR [Concomitant]
     Active Substance: ROSUVASTATIN CALCIUM
     Dosage: UNK
  7. CLONAZEPAM [Concomitant]
     Active Substance: CLONAZEPAM
     Dosage: UNK
  8. HYDROCODONE BITARTRATE [Concomitant]
     Active Substance: HYDROCODONE BITARTRATE
     Dosage: UNK
  9. BOTOX [Concomitant]
     Active Substance: ONABOTULINUMTOXINA
     Dosage: UNK

REACTIONS (4)
  - Skin cancer [Unknown]
  - Procedural pain [Unknown]
  - Migraine [Unknown]
  - Injection site pain [Unknown]
